FAERS Safety Report 18682708 (Version 1)
Quarter: 2020Q4

REPORT INFORMATION
  Report Type: Spontaneous
  Country: ES (occurrence: ES)
  Receive Date: 20201230
  Receipt Date: 20201230
  Transmission Date: 20210114
  Serious: Yes (Hospitalization)
  Sender: FDA-Public Use
  Company Number: ES-TEVA-2020-ES-1862803

PATIENT
  Sex: Male

DRUGS (3)
  1. VALSARTAN (7423A) [Suspect]
     Active Substance: VALSARTAN
     Dates: start: 201902, end: 2020
  2. LEVOFLOXACINO (2791A) [Concomitant]
     Active Substance: LEVOFLOXACIN
     Dates: start: 202009, end: 202009
  3. METFORMINA (1359A) [Concomitant]
     Active Substance: METFORMIN HYDROCHLORIDE
     Dates: start: 202007

REACTIONS (1)
  - Acute kidney injury [Recovered/Resolved]

NARRATIVE: CASE EVENT DATE: 202009
